FAERS Safety Report 4777204-1 (Version None)
Quarter: 2005Q3

REPORT INFORMATION
  Report Type: 
  Country: None (occurrence: None)
  Receive Date: 20050923
  Receipt Date: 20050915
  Transmission Date: 20060218
  Serious: Yes (Death, Hospitalization)
  Sender: FDA-Public Use
  Company Number: US-MERCK-0509USA02538

PATIENT
  Sex: Male
  Weight: 95 kg

DRUGS (7)
  1. VIOXX [Suspect]
     Route: 065
     Dates: start: 20010101, end: 20020101
  2. NITROGLYCERIN [Concomitant]
     Route: 065
  3. THEOPHYLLINE [Concomitant]
     Route: 065
  4. VERAPAMIL [Concomitant]
     Route: 065
  5. HYDROCHLOROTHIAZIDE [Concomitant]
     Route: 065
  6. AZMACORT [Concomitant]
     Route: 065
  7. PEPCID AC [Concomitant]
     Route: 065

REACTIONS (5)
  - CARDIAC DISORDER [None]
  - CEREBROVASCULAR ACCIDENT [None]
  - DEATH [None]
  - GENERAL SYMPTOM [None]
  - PROSTATE CANCER [None]
